FAERS Safety Report 10376999 (Version 3)
Quarter: 2015Q1

REPORT INFORMATION
  Report Type: Spontaneous
  Country: GB (occurrence: GB)
  Receive Date: 20140812
  Receipt Date: 20150202
  Transmission Date: 20150720
  Serious: Yes (Other)
  Sender: FDA-Public Use
  Company Number: GB-ORION CORPORATION ORION PHARMA-ENT 2013-0060

PATIENT
  Sex: Female

DRUGS (5)
  1. SINEMET [Suspect]
     Active Substance: CARBIDOPA\LEVODOPA
     Dosage: 10 PER DAY
     Route: 065
  2. RASAGILINE [Suspect]
     Active Substance: RASAGILINE
     Route: 065
     Dates: start: 201406
  3. COMTESS [Suspect]
     Active Substance: ENTACAPONE
     Indication: PARKINSON^S DISEASE
     Dosage: 5 A DAY
     Route: 065
     Dates: start: 2012
  4. QUETIAPINE [Suspect]
     Active Substance: QUETIAPINE
     Route: 065
     Dates: start: 201406
  5. PRAMIPEXOLE [Suspect]
     Active Substance: PRAMIPEXOLE
     Route: 065
     Dates: end: 201406

REACTIONS (17)
  - Agitation [Unknown]
  - Head discomfort [Unknown]
  - Abdominal pain [Unknown]
  - Muscle twitching [Unknown]
  - Back pain [Unknown]
  - Uterine prolapse [Unknown]
  - Defaecation urgency [Not Recovered/Not Resolved]
  - Malaise [Unknown]
  - Tremor [Unknown]
  - Myalgia [Unknown]
  - Benign neoplasm of adrenal gland [Unknown]
  - Disturbance in attention [Unknown]
  - Trismus [Unknown]
  - Dyskinesia [Unknown]
  - Somnolence [Unknown]
  - Palpitations [Unknown]
  - Feeling abnormal [Unknown]
